FAERS Safety Report 6762552-6 (Version None)
Quarter: 2010Q2

REPORT INFORMATION
  Report Type: 
  Country: None (occurrence: None)
  Receive Date: 20100609
  Receipt Date: 20100528
  Transmission Date: 20101027
  Serious: Yes (Congenital Anomaly, Other)
  Sender: FDA-Public Use
  Company Number: BE-PFIZER INC-2010051546

PATIENT
  Sex: Female

DRUGS (4)
  1. SERLAIN [Suspect]
     Dosage: 50 MG, 1X/DAY
     Route: 064
     Dates: start: 20100419
  2. LORAZEPAM [Suspect]
     Dosage: UNK
     Route: 064
     Dates: start: 20100503
  3. INFLUENZA VACCINE [Suspect]
     Indication: ANTIVIRAL PROPHYLAXIS
     Dosage: UNK
     Route: 064
     Dates: start: 20100101
  4. CLAMOXYL [Suspect]
     Dosage: UNK
     Route: 064
     Dates: start: 20100401

REACTIONS (7)
  - APGAR SCORE LOW [None]
  - DRUG EXPOSURE DURING PREGNANCY [None]
  - HYPOTONIA [None]
  - MUSCLE DISORDER [None]
  - NEUROPATHY PERIPHERAL [None]
  - PREMATURE BABY [None]
  - TALIPES [None]
